FAERS Safety Report 6863928-9 (Version None)
Quarter: 2010Q3

REPORT INFORMATION
  Report Type: 
  Country: None (occurrence: None)
  Receive Date: 20100720
  Receipt Date: 20100708
  Transmission Date: 20110219
  Serious: Yes (Hospitalization, Other)
  Sender: FDA-Public Use
  Company Number: 1-23084621

PATIENT
  Age: 36 Year
  Sex: Female
  Weight: 111.1313 kg

DRUGS (5)
  1. BACTRIM [Suspect]
     Indication: URINARY TRACT INFECTION
     Dosage: 1 TABLET, TWICE DAILY, ORAL
     Route: 048
     Dates: start: 20080401, end: 20080401
  2. MAXALT (RIZATRIPTAN) [Concomitant]
  3. PREVACID [Concomitant]
  4. BENTYL [Concomitant]
  5. PERCOCET [Concomitant]

REACTIONS (4)
  - BILE DUCT STONE [None]
  - DRUG HYPERSENSITIVITY [None]
  - HEADACHE [None]
  - MENINGITIS ASEPTIC [None]
